FAERS Safety Report 25633994 (Version 4)
Quarter: 2025Q3

REPORT INFORMATION
  Report Type: Spontaneous
  Country: EU (occurrence: EU)
  Receive Date: 20250801
  Receipt Date: 20250915
  Transmission Date: 20251020
  Serious: Yes (Death, Other)
  Sender: ADC THERAPEUTICS
  Company Number: EU-BIOVITRUM-2025-IT-009705

PATIENT
  Sex: Male

DRUGS (3)
  1. ZYNLONTA [Suspect]
     Active Substance: LONCASTUXIMAB TESIRINE-LPYL
     Indication: Diffuse large B-cell lymphoma
     Dosage: 0.15 MILLIGRAM/KILOGRAM, Q3WK
     Route: 042
     Dates: start: 20250501, end: 20250501
  2. ZYNLONTA [Suspect]
     Active Substance: LONCASTUXIMAB TESIRINE-LPYL
     Route: 042
     Dates: start: 20250522, end: 20250522
  3. DOXYCYCLINE HYDROCHLORIDE [Suspect]
     Active Substance: DOXYCYCLINE HYDROCHLORIDE
     Indication: Arthropod bite
     Dosage: 1 TABLET AT 8:00 AM AND 1 TABLET AT 8:00 PM DAILY FOR 21 CONSECUTIVE DAYS

REACTIONS (6)
  - Bone marrow failure [Not Recovered/Not Resolved]
  - Autoimmune disorder [Recovering/Resolving]
  - Diffuse large B-cell lymphoma [Fatal]
  - Condition aggravated [Fatal]
  - Thrombocytopenia [Not Recovered/Not Resolved]
  - Arthropod bite [Recovered/Resolved]

NARRATIVE: CASE EVENT DATE: 20250609
